FAERS Safety Report 16715846 (Version 10)
Quarter: 2022Q1

REPORT INFORMATION
  Report Type: Spontaneous
  Country: US (occurrence: US)
  Receive Date: 20190819
  Receipt Date: 20220104
  Transmission Date: 20220423
  Serious: Yes (Hospitalization, Other)
  Sender: FDA-Public Use
  Company Number: US-PFIZER INC-2019353290

PATIENT
  Age: 65 Year
  Sex: Female
  Weight: 114.31 kg

DRUGS (4)
  1. LYRICA [Suspect]
     Active Substance: PREGABALIN
     Indication: Pain
     Dosage: 200 MG, 3X/DAY
     Route: 048
  2. LYRICA [Suspect]
     Active Substance: PREGABALIN
     Indication: Neuropathy peripheral
     Dosage: 200 MG, 3X/DAY (200MG 3 TIMES A DAY BY MOUTH, MORNING NOON AND NIGHT.)
     Route: 048
  3. XANAX [Concomitant]
     Active Substance: ALPRAZOLAM
     Indication: Generalised anxiety disorder
     Dosage: 0.5 MG, 1X/DAY (AT BEDTIME)
     Route: 048
     Dates: start: 20190801
  4. METHOCARBAMOL [Concomitant]
     Active Substance: METHOCARBAMOL
     Indication: Arthralgia
     Dosage: 750 MG, AS NEEDED
     Route: 048
     Dates: start: 20190722

REACTIONS (15)
  - Haemorrhage [Unknown]
  - Staphylococcal infection [Unknown]
  - Callus formation delayed [Unknown]
  - Pyrexia [Unknown]
  - Delirium [Unknown]
  - Infection [Unknown]
  - Blister [Unknown]
  - Hyperkeratosis [Unknown]
  - Somnolence [Unknown]
  - Nausea [Unknown]
  - Feeling of body temperature change [Unknown]
  - Withdrawal syndrome [Unknown]
  - Irritability [Unknown]
  - Feeling abnormal [Unknown]
  - Memory impairment [Unknown]
